FAERS Safety Report 5129297-X (Version None)
Quarter: 2006Q4

REPORT INFORMATION
  Report Type: 
  Country: None (occurrence: None)
  Receive Date: 20061012
  Receipt Date: 20060926
  Transmission Date: 20070319
  Serious: Yes (Hospitalization)
  Sender: FDA-Public Use
  Company Number: 8019102

PATIENT
  Age: 23 Year
  Sex: Female
  Weight: 75 kg

DRUGS (6)
  1. KEPPRA [Suspect]
     Indication: EPILEPSY
     Dates: start: 20010101
  2. KEPPRA [Suspect]
     Indication: EPILEPSY
     Dosage: 4000 MG/D;
     Dates: start: 20050101, end: 20060826
  3. KEPPRA [Suspect]
     Indication: EPILEPSY
     Dates: start: 20060801, end: 20060801
  4. DILANTIN [Concomitant]
  5. TRANXENE [Concomitant]
  6. TOPAMAX [Concomitant]

REACTIONS (15)
  - ABNORMAL BEHAVIOUR [None]
  - ACTIVITIES OF DAILY LIVING IMPAIRED [None]
  - ANGER [None]
  - AUTISM [None]
  - DELUSION [None]
  - DISSOCIATION [None]
  - FATIGUE [None]
  - HALLUCINATION [None]
  - INCONTINENCE [None]
  - LETHARGY [None]
  - LOGORRHOEA [None]
  - MOOD SWINGS [None]
  - MORBID THOUGHTS [None]
  - ORAL INTAKE REDUCED [None]
  - UNEVALUABLE EVENT [None]
